FAERS Safety Report 15856184 (Version 1)
Quarter: 2019Q1

REPORT INFORMATION
  Report Type: Spontaneous
  Country: US (occurrence: US)
  Receive Date: 20190123
  Receipt Date: 20190123
  Transmission Date: 20190417
  Serious: No
  Sender: FDA-Public Use
  Company Number: US-UNITED THERAPEUTICS-UNT-2019-001092

PATIENT
  Sex: Female
  Weight: 33.16 kg

DRUGS (12)
  1. ORENITRAM [Suspect]
     Active Substance: TREPROSTINIL
     Dosage: UNK
     Route: 048
  2. ORENITRAM [Suspect]
     Active Substance: TREPROSTINIL
     Indication: PULMONARY ARTERIAL HYPERTENSION
     Dosage: EVERY 6 HRS TAKING 7 MG FOR 1ST 2 DOSES OF DAY AND 6.875 MG FOR LAST 2 DOSES OF DAY, TID
     Route: 048
     Dates: start: 20170816
  3. ORENITRAM [Suspect]
     Active Substance: TREPROSTINIL
     Dosage: UNK
     Route: 048
  4. ORENITRAM [Suspect]
     Active Substance: TREPROSTINIL
     Indication: PULMONARY ARTERIAL HYPERTENSION
     Dosage: EVERY 6 HRS TAKING 7 MG FOR 1ST 2 DOSES OF DAY AND 6.875 MG FOR LAST 2 DOSES OF DAY, TID
     Route: 048
     Dates: start: 20170816
  5. ORENITRAM [Suspect]
     Active Substance: TREPROSTINIL
     Dosage: UNK
     Route: 048
  6. ORENITRAM [Suspect]
     Active Substance: TREPROSTINIL
     Indication: PULMONARY ARTERIAL HYPERTENSION
     Dosage: EVERY 6 HRS TAKING 7 MG FOR 1ST 2 DOSES OF DAY AND 6.875 MG FOR LAST 2 DOSES OF DAY, TID
     Route: 048
     Dates: start: 20170816
  7. ORENITRAM [Suspect]
     Active Substance: TREPROSTINIL
     Dosage: UNK
     Route: 048
  8. ORENITRAM [Suspect]
     Active Substance: TREPROSTINIL
     Dosage: UNK
     Route: 048
  9. ORENITRAM [Suspect]
     Active Substance: TREPROSTINIL
     Indication: PULMONARY ARTERIAL HYPERTENSION
     Dosage: EVERY 6 HRS TAKING 7 MG FOR 1ST 2 DOSES OF DAY AND 6.875 MG FOR LAST 2 DOSES OF DAY, TID
     Route: 048
     Dates: start: 20170816
  10. ORENITRAM [Suspect]
     Active Substance: TREPROSTINIL
     Dosage: UNK
     Route: 048
  11. ORENITRAM [Suspect]
     Active Substance: TREPROSTINIL
     Dosage: UNK
     Route: 048
  12. ORENITRAM [Suspect]
     Active Substance: TREPROSTINIL
     Dosage: UNK
     Route: 048

REACTIONS (2)
  - Pulmonary arterial hypertension [Unknown]
  - Off label use [Unknown]
